FAERS Safety Report 4928013-1 (Version None)
Quarter: 2006Q1

REPORT INFORMATION
  Report Type: 
  Country: None (occurrence: None)
  Receive Date: 20060127
  Receipt Date: 20051222
  Transmission Date: 20060701
  Serious: Yes (Other)
  Sender: FDA-Public Use
  Company Number: 2006000998

PATIENT
  Age: 42 Year
  Sex: Female

DRUGS (2)
  1. LYRICA [Suspect]
     Indication: NEURALGIA
     Dosage: 150 MG (50 MG, 3 IN 1 D),ORAL
     Route: 048
     Dates: start: 20051215, end: 20051221
  2. TOPAMAX [Concomitant]

REACTIONS (2)
  - DYSKINESIA [None]
  - FACIAL PALSY [None]
